FAERS Safety Report 5582625-3 (Version None)
Quarter: 2008Q1

REPORT INFORMATION
  Report Type: 
  Country: None (occurrence: None)
  Receive Date: 20080107
  Receipt Date: 20071225
  Transmission Date: 20080703
  Serious: Yes (Hospitalization, Disabling)
  Sender: FDA-Public Use
  Company Number: PHHY2007CN01159

PATIENT
  Age: 56 Year
  Sex: Female
  Weight: 52 kg

DRUGS (3)
  1. GLEEVEC [Suspect]
     Indication: CHRONIC MYELOID LEUKAEMIA
     Dosage: 400 MG/ DAY
     Route: 048
     Dates: start: 20061101
  2. GLEEVEC [Suspect]
     Dosage: 800 MG/ DAY
     Route: 048
  3. GLEEVEC [Suspect]
     Dosage: 200 MG / DAY
     Route: 048

REACTIONS (3)
  - CONJUNCTIVITIS [None]
  - DEAFNESS [None]
  - PYREXIA [None]
